FAERS Safety Report 10148333 (Version 3)
Quarter: 2014Q2

REPORT INFORMATION
  Report Type: Spontaneous
  Country: US (occurrence: US)
  Receive Date: 20140501
  Receipt Date: 20140602
  Transmission Date: 20141212
  Serious: No
  Sender: FDA-Public Use
  Company Number: US-AMGEN-USASP2014024652

PATIENT
  Age: 57 Year
  Sex: Female
  Weight: 87.89 kg

DRUGS (8)
  1. ENBREL [Suspect]
     Indication: RHEUMATOID ARTHRITIS
     Dosage: 50 MG, QWK
     Route: 058
     Dates: start: 20080506, end: 20140402
  2. OMEPRAZOLE [Concomitant]
     Dosage: 20 UNK, UNK
     Route: 048
  3. NASONEX [Concomitant]
     Dosage: 50 MU, BID
  4. ETODOLAC [Concomitant]
     Dosage: 50 MG, BID
     Route: 048
  5. LYRICA [Concomitant]
     Dosage: 50 MG, 3 TABLETS, QHS
     Route: 048
  6. CYMBALTA [Concomitant]
     Dosage: 60 UNK, BID
  7. FOLIC ACID [Concomitant]
     Dosage: 1 MG, QD
  8. ADVAIR [Concomitant]
     Dosage: 250 MU, UNK

REACTIONS (1)
  - Bronchitis [Not Recovered/Not Resolved]
